FAERS Safety Report 6828786-7 (Version None)
Quarter: 2010Q3

REPORT INFORMATION
  Report Type: 
  Country: None (occurrence: None)
  Receive Date: 20100709
  Receipt Date: 20070220
  Transmission Date: 20110219
  Serious: No
  Sender: FDA-Public Use
  Company Number: US-PFIZER INC-2007014106

PATIENT
  Sex: Female
  Weight: 86.18 kg

DRUGS (7)
  1. CHANTIX [Suspect]
     Indication: SMOKING CESSATION THERAPY
     Dates: start: 20070101, end: 20070101
  2. EFFEXOR XR [Concomitant]
     Indication: DEPRESSION
  3. PROTONIX [Concomitant]
     Indication: GASTROOESOPHAGEAL REFLUX DISEASE
  4. DARVOCET [Concomitant]
     Indication: ARTHRITIS
  5. ACETYLSALICYLIC ACID [Concomitant]
  6. FELDENE [Concomitant]
     Indication: ARTHRITIS
  7. FEMHRT [Concomitant]
     Indication: MENOPAUSE

REACTIONS (5)
  - ABDOMINAL PAIN UPPER [None]
  - HEADACHE [None]
  - NAUSEA [None]
  - PAIN [None]
  - VOMITING [None]
